FAERS Safety Report 6480626-4 (Version None)
Quarter: 2009Q4

REPORT INFORMATION
  Report Type: 
  Country: None (occurrence: None)
  Receive Date: 20091202
  Receipt Date: 20091117
  Transmission Date: 20100525
  Serious: Yes (Other)
  Sender: FDA-Public Use
  Company Number: AUR-APL-2009-01303

PATIENT
  Age: 48 Year
  Sex: Male
  Weight: 99.34 kg

DRUGS (12)
  1. ATENOLOL [Suspect]
     Indication: CARDIAC DISORDER
     Dosage: 50MG
  2. METFORMIN HCL [Suspect]
     Indication: DIABETES MELLITUS
     Dosage: 850MG, BID
  3. FLUOXETINE [Suspect]
     Dosage: 20MG -  BID
  4. LISINOPRIL [Suspect]
     Indication: CARDIAC DISORDER
     Dosage: 40MG- BID
  5. HALOPERIDOL [Suspect]
     Indication: NERVOUS SYSTEM DISORDER
     Dosage: 1 PILL -QAM
  6. LITHIUM [Suspect]
     Indication: NERVOUS SYSTEM DISORDER
  7. GEMFIBROZIL [Suspect]
     Dosage: 60MG-BID
  8. NIFEDIPINE [Suspect]
     Indication: CARDIAC DISORDER
     Dosage: 30MG
  9. CHANTIX [Suspect]
     Indication: EX-TOBACCO USER
     Dates: end: 20090101
  10. NITROGLYCERIN [Suspect]
     Indication: CHEST PAIN
  11. OMEPRAZOLE [Suspect]
     Indication: GASTROINTESTINAL DISORDER
     Dosage: 20MG - BID
  12. LOVASTATIN [Suspect]
     Indication: CARDIAC DISORDER
     Dosage: 40MG

REACTIONS (9)
  - AGGRESSION [None]
  - CHEST PAIN [None]
  - DISTURBANCE IN ATTENTION [None]
  - DRUG INTERACTION [None]
  - INSOMNIA [None]
  - LOSS OF CONSCIOUSNESS [None]
  - MOOD SWINGS [None]
  - THINKING ABNORMAL [None]
  - VERBAL ABUSE [None]
